FAERS Safety Report 9432868 (Version 5)
Quarter: 2013Q3

REPORT INFORMATION
  Report Type: Report from Study
  Country: FR (occurrence: FR)
  Receive Date: 20130731
  Receipt Date: 20130910
  Transmission Date: 20140515
  Serious: Yes (Hospitalization)
  Sender: FDA-Public Use
  Company Number: FR-TEVA-421791USA

PATIENT
  Age: 80 Year
  Sex: Male
  Weight: 77 kg

DRUGS (35)
  1. LEVACT [Suspect]
     Indication: MANTLE CELL LYMPHOMA
     Dosage: DAY 1 AND 2 PER CYCLE
     Route: 042
     Dates: start: 20120404
  2. LEVACT [Suspect]
     Route: 042
     Dates: start: 20120510
  3. LEVACT [Suspect]
     Route: 042
     Dates: start: 20120619
  4. LEVACT [Suspect]
     Route: 042
     Dates: start: 20120730
  5. LEVACT [Suspect]
     Route: 042
     Dates: start: 20120903
  6. LEVACT [Suspect]
     Route: 042
     Dates: start: 20121015
  7. LEVACT [Suspect]
     Route: 042
     Dates: end: 20121216
  8. VELCADE [Suspect]
     Indication: MANTLE CELL LYMPHOMA
     Dosage: DAY 1,4,8,11 PER CYCLE
     Route: 058
     Dates: start: 20120404
  9. VELCADE [Suspect]
     Route: 058
     Dates: start: 20120510
  10. VELCADE [Suspect]
     Route: 058
     Dates: start: 20120619
  11. VELCADE [Suspect]
     Route: 058
     Dates: start: 20120730
  12. VELCADE [Suspect]
     Route: 058
     Dates: start: 20120903
  13. VELCADE [Suspect]
     Route: 058
     Dates: start: 20121015
  14. VELCADE [Suspect]
     Route: 058
     Dates: end: 20121225
  15. MABTHERA [Suspect]
     Indication: MANTLE CELL LYMPHOMA
     Dosage: DAY 1 PER CYCLE
     Route: 041
     Dates: start: 20120404
  16. MABTHERA [Suspect]
     Route: 041
     Dates: start: 20120510
  17. MABTHERA [Suspect]
     Route: 041
     Dates: start: 20120619
  18. MABTHERA [Suspect]
     Route: 041
     Dates: start: 20120730
  19. MABTHERA [Suspect]
     Route: 041
     Dates: start: 20120903
  20. MABTHERA [Suspect]
     Route: 041
     Dates: start: 20121015
  21. MABTHERA [Suspect]
     Route: 041
     Dates: end: 20121215
  22. DEXAMETHASONE [Suspect]
     Indication: MANTLE CELL LYMPHOMA
     Dosage: DAY 2
     Route: 041
     Dates: start: 20120404
  23. DEXAMETHASONE [Suspect]
     Route: 041
     Dates: start: 20120510
  24. DEXAMETHASONE [Suspect]
     Route: 041
     Dates: start: 20120619
  25. DEXAMETHASONE [Suspect]
     Route: 041
     Dates: start: 20120730
  26. DEXAMETHASONE [Suspect]
     Route: 041
     Dates: start: 20120903
  27. DEXAMETHASONE [Suspect]
     Route: 041
     Dates: start: 20121015
  28. DEXAMETHASONE [Suspect]
     Dates: end: 20121216
  29. KARDEGIC [Concomitant]
     Indication: PRODUCT USED FOR UNKNOWN INDICATION
     Dosage: 160 MILLIGRAM DAILY; ONE AT MIDDAY.
     Route: 048
  30. ACTONEL [Concomitant]
     Indication: MYOCARDIAL ISCHAEMIA
  31. OMEXEL LP [Concomitant]
     Dosage: .4 MILLIGRAM DAILY; ORODISPERSIBLE CR TABLET
  32. FIXICAL [Concomitant]
     Dosage: 2 DOSAGE FORMS DAILY;
  33. CORDARONE [Concomitant]
  34. AMLOR [Concomitant]
     Indication: MYOCARDIAL ISCHAEMIA
     Dosage: 10 MILLIGRAM DAILY;
     Route: 048
  35. ACETYL SALICYLIC ACID [Concomitant]
     Route: 048

REACTIONS (3)
  - Febrile bone marrow aplasia [Recovered/Resolved]
  - Pulmonary sepsis [Recovered/Resolved]
  - Neutropenia [Recovered/Resolved]
